FAERS Safety Report 22643137 (Version 1)
Quarter: 2023Q2

REPORT INFORMATION
  Report Type: Report from Study
  Country: BR (occurrence: BR)
  Receive Date: 20230627
  Receipt Date: 20230627
  Transmission Date: 20230722
  Serious: Yes (Other)
  Sender: FDA-Public Use
  Company Number: BR-ABBVIE-5304070

PATIENT
  Sex: Female
  Weight: 70 kg

DRUGS (2)
  1. RINVOQ [Suspect]
     Active Substance: UPADACITINIB
     Indication: Rheumatoid arthritis
     Dosage: DISCONTINUED IN 2023
     Route: 048
     Dates: start: 20230201
  2. RINVOQ [Suspect]
     Active Substance: UPADACITINIB
     Indication: Rheumatoid arthritis
     Dosage: STARTED IN 2023
     Route: 048

REACTIONS (4)
  - Bedridden [Unknown]
  - Fibromyalgia [Unknown]
  - Migraine [Unknown]
  - Pain [Unknown]

NARRATIVE: CASE EVENT DATE: 20230101
